FAERS Safety Report 7578448-6 (Version None)
Quarter: 2011Q2

REPORT INFORMATION
  Report Type: 
  Country: None (occurrence: None)
  Receive Date: 20110628
  Receipt Date: 20110621
  Transmission Date: 20111010
  Serious: Yes (Hospitalization, Other)
  Sender: FDA-Public Use
  Company Number: BE-ABBOTT-11P-013-0734353-00

PATIENT
  Sex: Female

DRUGS (3)
  1. BISOPROLOL [Concomitant]
     Indication: PRODUCT USED FOR UNKNOWN INDICATION
  2. ROFENID [Concomitant]
     Indication: PRODUCT USED FOR UNKNOWN INDICATION
  3. HUMIRA [Suspect]
     Indication: ANKYLOSING SPONDYLITIS
     Route: 058
     Dates: start: 20071025, end: 20110610

REACTIONS (6)
  - SMALL CELL LUNG CANCER STAGE UNSPECIFIED [None]
  - NECK PAIN [None]
  - CHEST PAIN [None]
  - TENDON DISORDER [None]
  - PERIARTHRITIS [None]
  - UVEITIS [None]
